FAERS Safety Report 10622661 (Version 1)
Quarter: 2014Q4

REPORT INFORMATION
  Report Type: Spontaneous
  Country: CH (occurrence: CH)
  Receive Date: 20141203
  Receipt Date: 20141203
  Transmission Date: 20150529
  Serious: Yes (Hospitalization, Other)
  Sender: FDA-Public Use
  Company Number: CH-PFIZER INC-2014327282

PATIENT
  Age: 18 Year
  Sex: Female

DRUGS (4)
  1. EFFEXOR [Suspect]
     Active Substance: VENLAFAXINE HYDROCHLORIDE
     Indication: BORDERLINE PERSONALITY DISORDER
     Dosage: 150 MG, 1X/DAY
     Route: 048
  2. STILNOX [Concomitant]
     Active Substance: ZOLPIDEM TARTRATE
     Indication: BORDERLINE PERSONALITY DISORDER
     Dosage: 10 MG, 1X/DAY
     Route: 048
  3. EFFEXOR [Suspect]
     Active Substance: VENLAFAXINE HYDROCHLORIDE
     Dosage: 3750 MG (25 TABLETS) AT ONCE
     Route: 048
     Dates: start: 20140927, end: 20140927
  4. XANAX [Concomitant]
     Active Substance: ALPRAZOLAM
     Indication: BORDERLINE PERSONALITY DISORDER
     Dosage: 4 MG, 1X/DAY
     Route: 048

REACTIONS (10)
  - Dyspnoea [Recovered/Resolved]
  - Generalised tonic-clonic seizure [Recovered/Resolved]
  - Frustration [Unknown]
  - Overdose [Unknown]
  - Fatigue [Recovered/Resolved]
  - Anger [Unknown]
  - Chest discomfort [Recovered/Resolved]
  - Headache [Unknown]
  - Poisoning [Recovered/Resolved]
  - Hypokalaemia [Recovered/Resolved]

NARRATIVE: CASE EVENT DATE: 20140927
